FAERS Safety Report 15883266 (Version 1)
Quarter: 2019Q1

REPORT INFORMATION
  Report Type: Spontaneous
  Country: US (occurrence: US)
  Receive Date: 20190129
  Receipt Date: 20190129
  Transmission Date: 20190417
  Serious: Yes (Other)
  Sender: FDA-Public Use
  Company Number: US-ROCHE-2252488

PATIENT
  Sex: Female

DRUGS (1)
  1. RITUXAN [Suspect]
     Active Substance: RITUXIMAB
     Indication: SJOGREN^S SYNDROME
     Route: 042

REACTIONS (7)
  - Infusion related reaction [Unknown]
  - Platelet count decreased [Unknown]
  - Interstitial lung disease [Unknown]
  - White blood cell count decreased [Unknown]
  - Intentional product use issue [Unknown]
  - Off label use [Unknown]
  - Dyspnoea [Unknown]
